FAERS Safety Report 7501062-5 (Version None)
Quarter: 2011Q2

REPORT INFORMATION
  Report Type: 
  Country: None (occurrence: None)
  Receive Date: 20110524
  Receipt Date: 20100608
  Transmission Date: 20111010
  Serious: No
  Sender: FDA-Public Use
  Company Number: US-NOVEN-ALL1-2010-03261

PATIENT

DRUGS (3)
  1. UNSPECIFIED ADHD MEDICATIONS [Concomitant]
     Dosage: UNK MG, UNKNOWN
     Route: 048
     Dates: start: 20090101
  2. DAYTRANA [Suspect]
     Dosage: UNK MG,1X/DAY:QD (ONE AND ONE HALF OF A 20 MG. PATCH)
     Route: 062
     Dates: start: 20100601
  3. DAYTRANA [Suspect]
     Dosage: 20 MG, 1X/DAY:QD
     Route: 062
     Dates: start: 20100602, end: 20100601

REACTIONS (4)
  - WRONG TECHNIQUE IN DRUG USAGE PROCESS [None]
  - PRODUCT QUALITY ISSUE [None]
  - OFF LABEL USE [None]
  - DRUG INEFFECTIVE [None]
